FAERS Safety Report 4685781-4 (Version None)
Quarter: 2005Q2

REPORT INFORMATION
  Report Type: 
  Country: None (occurrence: None)
  Receive Date: 20050606
  Receipt Date: 20050606
  Transmission Date: 20051028
  Serious: Yes (Hospitalization)
  Sender: FDA-Public Use
  Company Number: None

PATIENT
  Age: 78 Year
  Sex: Female
  Weight: 97.5234 kg

DRUGS (12)
  1. LEVAQUIN [Suspect]
     Indication: SKIN INFECTION
     Dosage: PO (ONE DOSE)
     Route: 048
     Dates: start: 20050526
  2. CLARINEX [Concomitant]
  3. LEXAPRO [Concomitant]
  4. RHINOCORT [Concomitant]
  5. TRICOR [Concomitant]
  6. SYNTHROID [Concomitant]
  7. VERAMPAMIL [Concomitant]
  8. ADVAIR [Concomitant]
  9. FERROUS SULFATE [Concomitant]
  10. MECLIZINE [Concomitant]
  11. NYSTATIN [Concomitant]
  12. SENOKOT [Concomitant]

REACTIONS (2)
  - PHOTODERMATOSIS [None]
  - PHOTOSENSITIVITY REACTION [None]
